FAERS Safety Report 8773101 (Version 2)
Quarter: 2012Q4

REPORT INFORMATION
  Report Type: Report from Study
  Country: US (occurrence: US)
  Receive Date: 20120908
  Receipt Date: 20120922
  Transmission Date: 20130627
  Serious: Yes (Hospitalization)
  Sender: FDA-Public Use
  Company Number: US-ABBOTT-12P-163-0913750-00

PATIENT
  Age: 29 Year
  Sex: Female
  Weight: 91.71 kg

DRUGS (44)
  1. HUMIRA 40 MG/ 0.8 ML PRE-FILLED SYRINGE [Suspect]
     Indication: CROHN^S DISEASE
     Dates: start: 20111012, end: 20120501
  2. PRENATAL VITAMINS [Concomitant]
     Indication: PRODUCT USED FOR UNKNOWN INDICATION
     Route: 048
     Dates: start: 20111012, end: 20120629
  3. VITAMIN C [Concomitant]
     Indication: PRODUCT USED FOR UNKNOWN INDICATION
     Route: 048
     Dates: start: 20111012, end: 20120515
  4. PENTASA [Concomitant]
     Indication: CROHN^S DISEASE
     Route: 048
     Dates: start: 20111012, end: 20120629
  5. CANASA [Concomitant]
     Indication: CROHN^S DISEASE
     Route: 054
     Dates: start: 20111012, end: 20111201
  6. MIRALAX [Concomitant]
     Indication: BOWEL MOVEMENT IRREGULARITY
     Route: 048
     Dates: start: 20111012, end: 20120629
  7. ZOFRAN [Concomitant]
     Indication: NAUSEA
     Route: 048
     Dates: start: 20111012, end: 20120629
  8. PHENERGAN [Concomitant]
     Indication: NAUSEA
     Dates: start: 20111012, end: 20120620
  9. PREDNISONE [Concomitant]
     Indication: CROHN^S DISEASE
     Route: 048
     Dates: start: 20111012, end: 20111018
  10. PREDNISONE [Concomitant]
     Route: 048
     Dates: start: 20111019, end: 20111029
  11. PREDNISONE [Concomitant]
     Route: 048
     Dates: start: 20120101, end: 20120107
  12. ALBUTEROL [Concomitant]
     Indication: ASTHMA
     Dates: start: 20111012, end: 20120124
  13. ALBUTEROL [Concomitant]
     Indication: BRONCHITIS
     Dates: start: 20120125, end: 20120207
  14. ALBUTEROL [Concomitant]
     Dates: start: 20120208, end: 20120629
  15. XANAX [Concomitant]
     Indication: ANXIETY
     Route: 048
     Dates: start: 20111021, end: 20111028
  16. LUNESTA [Concomitant]
     Indication: INSOMNIA
     Route: 048
     Dates: start: 20111012, end: 20111028
  17. WELLBUTRIN [Concomitant]
     Indication: DEPRESSION
     Route: 048
     Dates: start: 20111012, end: 20111028
  18. HYDROCODONE W/APAP [Concomitant]
     Indication: PAIN
     Dosage: 5/500
     Route: 048
     Dates: start: 20111012, end: 20120629
  19. HYDROCODONE W/APAP [Concomitant]
     Indication: CROHN^S DISEASE
  20. PROTONIX [Concomitant]
     Indication: DYSPEPSIA
     Route: 048
     Dates: start: 20111012, end: 20111028
  21. SUCRALFATE [Concomitant]
     Indication: CROHN^S DISEASE
     Route: 048
     Dates: start: 20111012, end: 20111028
  22. AMITIZA [Concomitant]
     Indication: CROHN^S DISEASE
     Route: 048
     Dates: start: 20111012, end: 20111028
  23. CIPROFLOXACIN HCL [Concomitant]
     Indication: RENAL DISORDER
     Route: 048
     Dates: start: 20111028, end: 20111106
  24. CIPROFLOXACIN HCL [Concomitant]
     Indication: URINARY TRACT INFECTION
  25. NASONEX [Concomitant]
     Indication: PROPHYLAXIS
     Route: 045
     Dates: start: 20111203, end: 20120429
  26. NASONEX [Concomitant]
     Indication: SINUSITIS
  27. ROCEPHIN [Concomitant]
     Indication: URINARY TRACT INFECTION
     Route: 042
     Dates: start: 20111028, end: 20111030
  28. ROCEPHIN [Concomitant]
     Indication: RENAL DISORDER
  29. AMOXICILLIN [Concomitant]
     Indication: SINUSITIS
     Route: 048
     Dates: start: 20111119, end: 20111202
  30. AMOXICILLIN [Concomitant]
     Indication: URINARY TRACT INFECTION
     Route: 048
     Dates: start: 20111215, end: 20111228
  31. AMOXICILLIN [Concomitant]
     Route: 048
     Dates: start: 20120101, end: 20120107
  32. AMOXICILLIN [Concomitant]
     Route: 048
     Dates: start: 20120131, end: 20120213
  33. AMOXICILLIN [Concomitant]
     Route: 048
     Dates: start: 20120226, end: 20120629
  34. FLAGYL [Concomitant]
     Indication: ANORECTAL INFECTION
     Route: 048
     Dates: start: 20111015, end: 20111019
  35. FLAGYL [Concomitant]
     Route: 048
     Dates: start: 20111115, end: 20111119
  36. FLAGYL [Concomitant]
     Route: 048
     Dates: start: 20111215, end: 20111219
  37. FLAGYL [Concomitant]
     Route: 048
     Dates: start: 20120115, end: 20120119
  38. FLAGYL [Concomitant]
     Route: 048
     Dates: start: 20120215, end: 20120219
  39. FLAGYL [Concomitant]
     Route: 048
     Dates: start: 20120301, end: 20120629
  40. TYLENOL [Concomitant]
     Indication: HEADACHE
     Route: 048
     Dates: start: 20111012, end: 20120829
  41. CLARITIN [Concomitant]
     Indication: HYPERSENSITIVITY
     Route: 048
     Dates: start: 20111201, end: 20120629
  42. BENADRYL [Concomitant]
     Indication: HYPERSENSITIVITY
     Route: 048
     Dates: start: 20111201, end: 20111204
  43. CAFFEINE [Concomitant]
     Indication: PRODUCT USED FOR UNKNOWN INDICATION
     Dates: start: 20111012
  44. ALCOHOL [Concomitant]
     Indication: PRODUCT USED FOR UNKNOWN INDICATION
     Dates: start: 20111012, end: 20111028

REACTIONS (34)
  - Kidney infection [Recovered/Resolved]
  - Kidney infection [Recovered/Resolved]
  - Urinary tract infection [Recovered/Resolved]
  - Dyspnoea [Recovered/Resolved]
  - Road traffic accident [Recovered/Resolved]
  - Urinary tract infection [Recovered/Resolved]
  - Anorectal infection [Recovered/Resolved]
  - Pyrexia [Recovered/Resolved]
  - Anorectal infection [Recovered/Resolved]
  - Sinusitis [Recovered/Resolved]
  - Anorectal infection [Recovered/Resolved]
  - Urinary tract infection [Recovered/Resolved]
  - Sinusitis [Recovered/Resolved]
  - Urinary tract infection [Unknown]
  - Sinusitis [Unknown]
  - Sinusitis [Unknown]
  - Bronchitis [Recovered/Resolved]
  - Headache [Unknown]
  - Hypersensitivity [Unknown]
  - Hypersensitivity [Unknown]
  - Dyspepsia [Unknown]
  - Depression [Unknown]
  - Pain [Unknown]
  - Anxiety [Unknown]
  - Insomnia [Unknown]
  - Nausea [Unknown]
  - Asthma [Unknown]
  - Crohn^s disease [Unknown]
  - Pyrexia [Recovered/Resolved]
  - Anorectal infection [Recovered/Resolved]
  - Chest X-ray abnormal [Recovered/Resolved]
  - Pain [Recovered/Resolved]
  - Uterine contractions during pregnancy [Recovered/Resolved]
  - Muscle spasms [Recovered/Resolved]
